FAERS Safety Report 5480963-6 (Version None)
Quarter: 2007Q4

REPORT INFORMATION
  Report Type: 
  Country: None (occurrence: None)
  Receive Date: 20071009
  Receipt Date: 20070929
  Transmission Date: 20080405
  Serious: Yes (Hospitalization, Other)
  Sender: FDA-Public Use
  Company Number: US-AMGEN-KDL238536

PATIENT
  Sex: Male

DRUGS (1)
  1. ENBREL [Suspect]
     Indication: PSORIASIS
     Route: 058
     Dates: start: 20040501

REACTIONS (6)
  - BONE NEOPLASM MALIGNANT [None]
  - BONE PAIN [None]
  - GAIT DISTURBANCE [None]
  - INJECTION SITE IRRITATION [None]
  - PATHOLOGICAL FRACTURE [None]
  - PROSTATE CANCER [None]
